FAERS Safety Report 11966642 (Version 7)
Quarter: 2016Q2

REPORT INFORMATION
  Report Type: Report from Study
  Country: US (occurrence: US)
  Receive Date: 20160127
  Receipt Date: 20160617
  Transmission Date: 20160815
  Serious: Yes (Hospitalization)
  Sender: FDA-Public Use
  Company Number: US-JNJFOC-20160118906

PATIENT
  Age: 69 Year
  Sex: Male
  Weight: 77.11 kg

DRUGS (2)
  1. INFLIXIMAB, RECOMBINANT [Suspect]
     Active Substance: INFLIXIMAB
     Indication: PSORIASIS
     Route: 042
     Dates: start: 20110830, end: 20160602
  2. INFLIXIMAB, RECOMBINANT [Suspect]
     Active Substance: INFLIXIMAB
     Indication: PSORIASIS
     Route: 042
     Dates: end: 20160121

REACTIONS (5)
  - Peritonitis [Recovered/Resolved]
  - Appendicitis perforated [Recovered/Resolved]
  - Postoperative ileus [Recovered/Resolved]
  - Atelectasis [Unknown]
  - Abscess [Unknown]

NARRATIVE: CASE EVENT DATE: 20151002
